FAERS Safety Report 13820519 (Version 2)
Quarter: 2017Q4

REPORT INFORMATION
  Report Type: Spontaneous
  Country: US (occurrence: US)
  Receive Date: 20170801
  Receipt Date: 20171106
  Transmission Date: 20180320
  Serious: No
  Sender: FDA-Public Use
  Company Number: US-JNJFOC-20170601697

PATIENT
  Age: 35 Year
  Sex: Female

DRUGS (2)
  1. ORTHO TRI CYCLEN LO [Suspect]
     Active Substance: ETHINYL ESTRADIOL\NORGESTIMATE
     Indication: PRODUCT USED FOR UNKNOWN INDICATION
     Route: 048
  2. ATENOL [Concomitant]
     Active Substance: ATENOLOL
     Route: 065
     Dates: end: 20160831

REACTIONS (1)
  - Product packaging issue [Unknown]
